FAERS Safety Report 8879312 (Version 2)
Quarter: 2012Q4

REPORT INFORMATION
  Report Type: 
  Country: US (occurrence: US)
  Receive Date: 20121031
  Receipt Date: 20121120
  Transmission Date: 20130627
  Serious: Yes (Death, Hospitalization)
  Sender: FDA-Public Use
  Company Number: US-ACTELION-A-NJ2012-72589

PATIENT
  Age: 70 Year
  Sex: Female

DRUGS (6)
  1. VENTAVIS [Suspect]
     Indication: PULMONARY ARTERIAL HYPERTENSION
     Dosage: UNK
     Route: 055
     Dates: start: 20120704, end: 201210
  2. VELETRI [Suspect]
     Indication: PULMONARY ARTERIAL HYPERTENSION
     Dosage: 6.31 ng/kg, per min
     Route: 041
     Dates: start: 20100712, end: 20121024
  3. SILDENAFIL [Concomitant]
  4. LETAIRIS [Concomitant]
  5. LASIX [Concomitant]
  6. SPIRONOLACTONE [Concomitant]

REACTIONS (1)
  - Pulmonary arterial hypertension [Fatal]
